FAERS Safety Report 6136640-1 (Version None)
Quarter: 2009Q1

REPORT INFORMATION
  Report Type: 
  Country: None (occurrence: None)
  Receive Date: 20090330
  Receipt Date: 20090324
  Transmission Date: 20090719
  Serious: Yes (Other)
  Sender: FDA-Public Use
  Company Number: A0775731A

PATIENT
  Age: 36 Year
  Sex: Female

DRUGS (5)
  1. COMBIVIR [Suspect]
     Indication: HIV INFECTION
     Dosage: 900MG PER DAY
     Route: 048
     Dates: start: 20070828
  2. TRUVADA [Concomitant]
     Indication: HIV INFECTION
     Dosage: 500MG PER DAY
     Route: 048
     Dates: end: 20070828
  3. NORVIR [Concomitant]
     Indication: HIV INFECTION
     Dosage: 100MG PER DAY
     Route: 048
     Dates: end: 20070828
  4. REYATAZ [Concomitant]
     Indication: HIV INFECTION
     Dosage: 300MG PER DAY
     Route: 048
     Dates: end: 20070828
  5. KALETRA [Concomitant]
     Indication: HIV INFECTION
     Dosage: 1500MG PER DAY
     Route: 048
     Dates: start: 20070828

REACTIONS (4)
  - DRUG EXPOSURE DURING PREGNANCY [None]
  - LIVE BIRTH [None]
  - PRECIPITATE LABOUR [None]
  - PREMATURE LABOUR [None]
